FAERS Safety Report 8807603 (Version 3)
Quarter: 2013Q1

REPORT INFORMATION
  Report Type: Spontaneous
  Country: CA (occurrence: CA)
  Receive Date: 20120925
  Receipt Date: 20130221
  Transmission Date: 20140127
  Serious: Yes (Other)
  Sender: FDA-Public Use
  Company Number: CA-AMGEN-CANSP2012047794

PATIENT
  Age: 68 Year
  Sex: Female
  Weight: 48.53 kg

DRUGS (6)
  1. ENBREL [Suspect]
     Indication: RHEUMATOID ARTHRITIS
     Dosage: 50 MG, QWK
     Route: 058
     Dates: start: 200710, end: 20120426
  2. CELEBREX [Concomitant]
     Dosage: UNK
  3. METHOTREXATE [Concomitant]
     Dosage: UNK
  4. HUMIRA [Concomitant]
     Dosage: UNK
  5. THYROXINE [Concomitant]
     Indication: HYPOTHYROIDISM
     Dosage: 0.75 MG, UNK
     Route: 048
  6. SERTRALINE [Concomitant]
     Dosage: UNK
     Route: 048

REACTIONS (5)
  - Drug eruption [Recovered/Resolved]
  - Facial pain [Recovered/Resolved]
  - Rash macular [Recovered/Resolved]
  - Pruritus [Recovered/Resolved]
  - Oral herpes [Recovered/Resolved]
